FAERS Safety Report 21035983 (Version 4)
Quarter: 2022Q4

REPORT INFORMATION
  Report Type: Spontaneous
  Country: FR (occurrence: FR)
  Receive Date: 20220701
  Receipt Date: 20221110
  Transmission Date: 20230112
  Serious: Yes (Death, Other)
  Sender: FDA-Public Use
  Company Number: FR-GILEAD-2022-0581860

PATIENT
  Age: 50 Year
  Sex: Female

DRUGS (19)
  1. ISENTRESS [Suspect]
     Active Substance: RALTEGRAVIR POTASSIUM
     Indication: HIV-2 infection
     Dosage: UNK UNK, QD
     Route: 065
     Dates: start: 20120522, end: 20120702
  2. ISENTRESS [Suspect]
     Active Substance: RALTEGRAVIR POTASSIUM
     Dosage: UNK, QD
     Route: 065
     Dates: start: 201209, end: 20140408
  3. VIREAD [Suspect]
     Active Substance: TENOFOVIR DISOPROXIL FUMARATE
     Indication: HIV-2 infection
     Dosage: 1 DOSAGE FORM, QD
     Route: 065
     Dates: start: 20060627, end: 20170302
  4. VIREAD [Suspect]
     Active Substance: TENOFOVIR DISOPROXIL FUMARATE
     Indication: Hepatitis B
  5. VIREAD [Suspect]
     Active Substance: TENOFOVIR DISOPROXIL FUMARATE
     Indication: HIV test
  6. EMTRIVA [Suspect]
     Active Substance: EMTRICITABINE
     Indication: HIV-2 infection
     Dosage: 1 DF, QD (UNK, QD)
     Route: 065
     Dates: start: 20060627, end: 20120522
  7. EMTRIVA [Suspect]
     Active Substance: EMTRICITABINE
     Dosage: 1 DF, QD (UNK, QD)
     Route: 065
     Dates: start: 20160909, end: 20170302
  8. DARUNAVIR [Suspect]
     Active Substance: DARUNAVIR
     Indication: HIV-2 infection
     Dosage: UNK UNK, QD
     Route: 065
     Dates: start: 20070809, end: 20111212
  9. KIVEXA [Suspect]
     Active Substance: ABACAVIR SULFATE\LAMIVUDINE
     Indication: HIV-2 infection
     Dosage: UNK UNK, QD
     Route: 065
     Dates: start: 20120522, end: 20160909
  10. DOLUTEGRAVIR [Suspect]
     Active Substance: DOLUTEGRAVIR
     Indication: HIV-2 infection
     Dosage: UNK, QD
     Route: 065
     Dates: start: 20140408, end: 20170302
  11. INVIRASE [Suspect]
     Active Substance: SAQUINAVIR MESYLATE
     Indication: HIV-2 infection
     Dosage: UNK UNK, QD
     Route: 065
     Dates: start: 20120702, end: 201209
  12. RITONAVIR [Suspect]
     Active Substance: RITONAVIR
     Indication: HIV-2 infection
     Dosage: UNK, QD
     Route: 065
     Dates: start: 20070806, end: 20120522
  13. RITONAVIR [Suspect]
     Active Substance: RITONAVIR
     Dosage: UNK, QD
     Route: 065
     Dates: start: 20120702, end: 201209
  14. ABACAVIR SULFATE\LAMIVUDINE [Suspect]
     Active Substance: ABACAVIR SULFATE\LAMIVUDINE
     Indication: HIV-2 infection
     Dosage: UNK, QD
     Dates: start: 20120522, end: 20160909
  15. COTRIMOXAZOLE [Concomitant]
     Active Substance: SULFAMETHOXAZOLE\TRIMETHOPRIM
     Indication: Product used for unknown indication
     Dosage: UNK
     Route: 065
  16. ZOLPIDEM [Concomitant]
     Active Substance: ZOLPIDEM TARTRATE
     Indication: Product used for unknown indication
     Dosage: UNK
     Route: 065
  17. ESOMEPRAZOLE [Concomitant]
     Active Substance: ESOMEPRAZOLE
     Indication: Product used for unknown indication
     Dosage: UNK
     Route: 065
  18. ATAZANAVIR [Concomitant]
     Active Substance: ATAZANAVIR
     Indication: Product used for unknown indication
     Dosage: UNK
     Route: 065
  19. ATAZANAVIR [Concomitant]
     Active Substance: ATAZANAVIR
     Indication: Product used for unknown indication

REACTIONS (7)
  - Dyspepsia [Unknown]
  - Pruritus [Unknown]
  - Genotype drug resistance test positive [Not Recovered/Not Resolved]
  - Hepatitis B DNA increased [Recovered/Resolved]
  - Drug ineffective [Not Recovered/Not Resolved]
  - Blood HIV RNA increased [Not Recovered/Not Resolved]
  - Death [Fatal]

NARRATIVE: CASE EVENT DATE: 20111114
